FAERS Safety Report 4623133-3 (Version None)
Quarter: 2005Q1

REPORT INFORMATION
  Report Type: 
  Country: None (occurrence: None)
  Receive Date: 20050328
  Receipt Date: 20050328
  Transmission Date: 20050727
  Serious: Yes (Hospitalization)
  Sender: FDA-Public Use
  Company Number: None

PATIENT
  Age: 55 Year
  Sex: Female
  Weight: 134.2647 kg

DRUGS (2)
  1. DOXORUBICIN HCL [Suspect]
     Indication: BREAST CANCER
     Dosage: 60MG/M2 Q 2WKS-IV
     Route: 042
     Dates: start: 20050124
  2. CYCLOPHOSPHAMIDE [Suspect]
     Indication: BREAST CANCER
     Dosage: 600 MG/M2 Q 2 WKS-IV
     Route: 042
     Dates: start: 20050124

REACTIONS (5)
  - CHILLS [None]
  - FEBRILE NEUTROPENIA [None]
  - HAEMOGLOBIN ABNORMAL [None]
  - PANCYTOPENIA [None]
  - PLATELET COUNT ABNORMAL [None]
